FAERS Safety Report 18852994 (Version 4)
Quarter: 2021Q2

REPORT INFORMATION
  Report Type: Spontaneous
  Country: GB (occurrence: GB)
  Receive Date: 20210205
  Receipt Date: 20210405
  Transmission Date: 20210717
  Serious: Yes (Life-Threatening, Hospitalization, Other)
  Sender: FDA-Public Use
  Company Number: GB-MYLANLABS-2021M1007365

PATIENT
  Age: 62 Year
  Sex: Male
  Weight: 100 kg

DRUGS (8)
  1. FENTANYL. [Suspect]
     Active Substance: FENTANYL
     Indication: GENERAL ANAESTHESIA
     Dosage: 150 MICROGRAM, QD
     Route: 042
     Dates: start: 20180215
  2. AMOXICILLIN TRIHYDRATE [Suspect]
     Active Substance: AMOXICILLIN
     Indication: PRODUCT USED FOR UNKNOWN INDICATION
     Dosage: UNK
     Route: 048
  3. PROPOFOL. [Suspect]
     Active Substance: PROPOFOL
     Indication: GENERAL ANAESTHESIA
     Dosage: 200 MILLIGRAM, QD
     Route: 042
     Dates: start: 20180215, end: 20180215
  4. AMOXICILLIN TRIHYDRATE [Suspect]
     Active Substance: AMOXICILLIN
     Dosage: UNK
     Route: 065
  5. CO?AMOXICLAV                       /00756801/ [Concomitant]
     Active Substance: AMOXICILLIN\CLAVULANIC ACID
     Indication: GENERAL ANAESTHESIA
     Dosage: DAILY DOSE: 200 MG
     Route: 048
     Dates: start: 20180215, end: 20180215
  6. MIDAZOLAM. [Concomitant]
     Active Substance: MIDAZOLAM
     Indication: PRODUCT USED FOR UNKNOWN INDICATION
     Dosage: UNK
     Route: 065
     Dates: start: 20180215
  7. FENTANYL CITRATE. [Suspect]
     Active Substance: FENTANYL CITRATE
     Indication: GENERAL ANAESTHESIA
     Dosage: 150 MICROGRAM, QD
     Route: 042
     Dates: start: 20180215
  8. AMOXICILLIN TRIHYDRATE [Suspect]
     Active Substance: AMOXICILLIN
     Indication: SURGERY
     Dosage: 1.2 GRAM, QD
     Route: 042
     Dates: start: 20180215

REACTIONS (6)
  - Myocardial infarction [Recovered/Resolved]
  - Anaphylactic reaction [Recovered/Resolved]
  - Cardio-respiratory arrest [Unknown]
  - Anaphylactic shock [Recovered/Resolved]
  - Cardiac disorder [Not Recovered/Not Resolved]
  - Hypotension [Recovered/Resolved]

NARRATIVE: CASE EVENT DATE: 20180215
